FAERS Safety Report 13594071 (Version 1)
Quarter: 2017Q2

REPORT INFORMATION
  Report Type: Spontaneous
  Country: US (occurrence: US)
  Receive Date: 20170530
  Receipt Date: 20170530
  Transmission Date: 20170830
  Serious: Yes (Other)
  Sender: FDA-Public Use
  Company Number: US-ELI_LILLY_AND_COMPANY-US201705011578

PATIENT
  Age: 19 Year
  Sex: Male

DRUGS (2)
  1. GEMZAR [Suspect]
     Active Substance: GEMCITABINE HYDROCHLORIDE
     Indication: NEOPLASM MALIGNANT
     Dosage: UNK, UNKNOWN
     Route: 042
     Dates: start: 20170410, end: 20170511
  2. DOCETAXEL. [Concomitant]
     Active Substance: DOCETAXEL
     Indication: NEOPLASM MALIGNANT
     Dosage: UNK, UNKNOWN
     Route: 065

REACTIONS (5)
  - Pain [Not Recovered/Not Resolved]
  - Off label use [Unknown]
  - Intestinal mass [None]
  - Malignant neoplasm progression [Not Recovered/Not Resolved]
  - Metastases to liver [None]

NARRATIVE: CASE EVENT DATE: 20170410
